FAERS Safety Report 7370262-X (Version None)
Quarter: 2011Q1

REPORT INFORMATION
  Report Type: 
  Country: None (occurrence: None)
  Receive Date: 20110323
  Receipt Date: 20110317
  Transmission Date: 20110831
  Serious: Yes (Death)
  Sender: FDA-Public Use
  Company Number: PHHY2011US22136

PATIENT
  Age: 35 Year

DRUGS (5)
  1. CYCLOSPORINE [Suspect]
     Indication: STEM CELL TRANSPLANT
  2. ATG                                     /BEL/ [Suspect]
  3. MYCOPHENOLATE MOFETIL [Suspect]
     Indication: STEM CELL TRANSPLANT
  4. FLUDARABINE [Concomitant]
  5. MELPHALAN [Concomitant]

REACTIONS (1)
  - INFECTION [None]
